FAERS Safety Report 5268687-1 (Version None)
Quarter: 2007Q1

REPORT INFORMATION
  Report Type: 
  Country: None (occurrence: None)
  Receive Date: 20061213
  Receipt Date: 20040908
  Transmission Date: 20070707
  Serious: Yes (Other)
  Sender: FDA-Public Use
  Company Number: 2004UW18890

PATIENT
  Age: 63 Year
  Sex: Male
  Weight: 90.7194 kg

DRUGS (6)
  1. IRESSA [Suspect]
     Indication: NON-SMALL CELL LUNG CANCER
  2. ALBUTEROL [Concomitant]
  3. IPRATROPIUM BROMIDE [Concomitant]
  4. LORAZEPAM [Concomitant]
  5. TEGRETOL [Concomitant]
  6. AZMACORT [Concomitant]

REACTIONS (3)
  - EYE IRRITATION [None]
  - NASAL DISCOMFORT [None]
  - RASH [None]
